FAERS Safety Report 24944615 (Version 1)
Quarter: 2025Q1

REPORT INFORMATION
  Report Type: Spontaneous
  Country: US (occurrence: US)
  Receive Date: 20250208
  Receipt Date: 20250208
  Transmission Date: 20250408
  Serious: No
  Sender: SANOFI AVENTIS
  Company Number: US-SANOFI-02400572

PATIENT
  Age: 41 Year
  Sex: Female

DRUGS (2)
  1. DUPIXENT [Suspect]
     Active Substance: DUPILUMAB
     Indication: Dermatitis atopic
     Dosage: 300 MG QOW
     Route: 065
  2. DUPIXENT [Suspect]
     Active Substance: DUPILUMAB
     Dosage: 300 MG QOW
     Route: 065

REACTIONS (2)
  - Ocular hyperaemia [Unknown]
  - Skin exfoliation [Unknown]
